FAERS Safety Report 5458663-8 (Version None)
Quarter: 2007Q3

REPORT INFORMATION
  Report Type: 
  Country: None (occurrence: None)
  Receive Date: 20070919
  Receipt Date: 20070418
  Transmission Date: 20080115
  Serious: No
  Sender: FDA-Public Use
  Company Number: US-ASTRAZENECA-2007UW07432

PATIENT
  Age: 29 Year
  Sex: Female

DRUGS (5)
  1. SEROQUEL [Suspect]
     Route: 048
     Dates: start: 20060101
  2. LEXAPRO [Suspect]
     Indication: BIPOLAR I DISORDER
     Route: 048
     Dates: start: 20060101
  3. KLONOPIN [Suspect]
     Indication: BIPOLAR DISORDER
     Route: 048
     Dates: start: 20060101
  4. DEPAKOTE [Suspect]
     Indication: EPILEPSY
     Route: 048
  5. TOPAMAX [Suspect]
     Indication: EPILEPSY
     Route: 048

REACTIONS (4)
  - DRUG INTERACTION [None]
  - DRY EYE [None]
  - DYSPHAGIA [None]
  - TREMOR [None]
